FAERS Safety Report 10359393 (Version 1)
Quarter: 2014Q3

REPORT INFORMATION
  Report Type: Spontaneous
  Country: CN (occurrence: CN)
  Receive Date: 20140804
  Receipt Date: 20140804
  Transmission Date: 20150326
  Serious: Yes (Other)
  Sender: FDA-Public Use
  Company Number: CN-JNJFOC-20140717155

PATIENT

DRUGS (5)
  1. IFOSFAMIDE. [Suspect]
     Active Substance: IFOSFAMIDE
     Indication: OSTEOSARCOMA
     Dosage: 3 G/M2 FROM DAYS 1 TO 5
     Route: 042
  2. METHOTREXATE [Suspect]
     Active Substance: METHOTREXATE
     Indication: OSTEOSARCOMA
     Dosage: 10 G/M2 ON DAY 1
     Route: 042
  3. DOXORUBICIN [Suspect]
     Active Substance: DOXORUBICIN
     Indication: OSTEOSARCOMA
     Dosage: DAYS 1 TO 3
     Route: 042
  4. RECOMBINANT HUMAN ENDOSTATIN [Suspect]
     Active Substance: ENDOSTATIN
     Indication: OSTEOSARCOMA
     Dosage: DAYS 1 TO 4 FOR 4 CYCLES (21 DAY CYCLE)
     Route: 042
  5. CISPLATIN. [Suspect]
     Active Substance: CISPLATIN
     Indication: OSTEOSARCOMA
     Dosage: DAY 1
     Route: 042

REACTIONS (6)
  - Off label use [Unknown]
  - Vomiting [Unknown]
  - Nausea [Unknown]
  - Leukopenia [Unknown]
  - Hepatic function abnormal [Unknown]
  - Anaemia [Unknown]
